FAERS Safety Report 21593667 (Version 2)
Quarter: 2022Q4

REPORT INFORMATION
  Report Type: Spontaneous
  Country: US (occurrence: US)
  Receive Date: 20221115
  Receipt Date: 20221219
  Transmission Date: 20230113
  Serious: No
  Sender: FDA-Public Use
  Company Number: US-BRISTOL-MYERS SQUIBB COMPANY-2022-137014

PATIENT
  Age: 69 Year
  Sex: Female

DRUGS (9)
  1. THALOMID [Suspect]
     Active Substance: THALIDOMIDE
     Indication: Plasma cell myeloma
     Dosage: TAKE 1 CAPSULE BY MOUTH NIGHTLY. SWALLOW WHOLE, WITHOUT BREAKING OPEN. TAKE ON AN EMPTY STOMACH AT L
     Route: 048
     Dates: start: 20221018
  2. DEXAMETHASONE [Suspect]
     Active Substance: DEXAMETHASONE
     Indication: Product used for unknown indication
  3. ACYCLOVIR [Concomitant]
     Active Substance: ACYCLOVIR
     Indication: Product used for unknown indication
  4. ASPIRIN CHW 81MG [Concomitant]
     Indication: Product used for unknown indication
     Dosage: CHEW
     Route: 048
  5. CYTOTEC [Concomitant]
     Active Substance: MISOPROSTOL
     Indication: Product used for unknown indication
  6. OMEPRAZOLE [Concomitant]
     Active Substance: OMEPRAZOLE
     Indication: Product used for unknown indication
  7. WELCHOL PAK 3.75 GM [Concomitant]
     Indication: Product used for unknown indication
  8. ZOFRAN TAB 4MG ODT [Concomitant]
     Indication: Product used for unknown indication
  9. ZOMETA INJ 4MG/100 [Concomitant]
     Indication: Product used for unknown indication
     Dosage: 4 MG/100

REACTIONS (3)
  - Balance disorder [Unknown]
  - Feeling abnormal [Unknown]
  - Dizziness [Unknown]

NARRATIVE: CASE EVENT DATE: 20221101
